FAERS Safety Report 8615935-3 (Version None)
Quarter: 2012Q3

REPORT INFORMATION
  Report Type: 
  Country: None (occurrence: None)
  Receive Date: 20120823
  Receipt Date: 20120820
  Transmission Date: 20120928
  Serious: Yes (Death)
  Sender: FDA-Public Use
  Company Number: CN-GLAXOSMITHKLINE-B0821716A

PATIENT
  Sex: Male
  Weight: 60 kg

DRUGS (3)
  1. VALPROATE SODIUM [Concomitant]
     Indication: EPILEPSY
     Dosage: 500MG PER DAY
     Route: 048
     Dates: start: 20120520, end: 20120722
  2. GANCICLOVIR [Concomitant]
     Indication: ENCEPHALITIS
     Dosage: 500MG PER DAY
     Route: 042
     Dates: start: 20120626, end: 20120722
  3. LAMICTAL [Suspect]
     Indication: EPILEPSY
     Dosage: 25MG PER DAY
     Route: 048
     Dates: start: 20120621, end: 20120722

REACTIONS (22)
  - NIKOLSKY'S SIGN [None]
  - SWELLING [None]
  - MOUTH ULCERATION [None]
  - DYSKINESIA [None]
  - GENITAL EROSION [None]
  - RASH [None]
  - MULTI-ORGAN FAILURE [None]
  - INFECTION [None]
  - PYREXIA [None]
  - CIRCULATORY COLLAPSE [None]
  - SCAB [None]
  - HYPOPROTEINAEMIA [None]
  - BLISTER [None]
  - EPIDERMOLYSIS BULLOSA [None]
  - CONJUNCTIVITIS [None]
  - DEATH [None]
  - THROMBOCYTOPENIA [None]
  - RESPIRATORY FAILURE [None]
  - SKIN EXFOLIATION [None]
  - LIP EROSION [None]
  - HYPERSENSITIVITY [None]
  - ERYTHEMA [None]
